FAERS Safety Report 16836171 (Version 1)
Quarter: 2019Q3

REPORT INFORMATION
  Report Type: Spontaneous
  Country: ES (occurrence: ES)
  Receive Date: 20190921
  Receipt Date: 20190921
  Transmission Date: 20191005
  Serious: Yes (Other)
  Sender: FDA-Public Use
  Company Number: ES-AUROBINDO-AUR-APL-2019-042822

PATIENT
  Age: 6 Month
  Sex: Female
  Weight: 5.78 kg

DRUGS (6)
  1. OMEPRAZOLE. [Suspect]
     Active Substance: OMEPRAZOLE
     Dosage: FARMA QU?MICA SUR S.L. 11057/10/42
     Route: 048
     Dates: start: 20190328, end: 20190527
  2. MINOXIDIL. [Suspect]
     Active Substance: MINOXIDIL
     Indication: GASTROOESOPHAGEAL REFLUX DISEASE
     Dosage: UNK
     Route: 048
     Dates: start: 20190328, end: 20190527
  3. OMEPRAZOLE. [Concomitant]
     Active Substance: OMEPRAZOLE
     Indication: GASTROOESOPHAGEAL REFLUX DISEASE
     Dosage: 1 MILLIGRAM/KILOGRAM, ONCE A DAY,2 MG/ML
     Route: 048
     Dates: start: 20190213, end: 20190321
  4. OMEPRAZOLE. [Concomitant]
     Active Substance: OMEPRAZOLE
     Dosage: UNAFFECTED ALERT QUALITY, SOLUTION AT 2 MG / ML
     Route: 048
     Dates: start: 20190213, end: 20190321
  5. OMEPRAZOLE. [Suspect]
     Active Substance: OMEPRAZOLE
     Indication: GASTROOESOPHAGEAL REFLUX DISEASE
     Dosage: 1 MILLIGRAM/KILOGRAM, ONCE A DAY,2 MG/ML
     Route: 048
     Dates: start: 20190408, end: 20190621
  6. OMEPRAZOLE. [Concomitant]
     Active Substance: OMEPRAZOLE
     Dosage: NO AFECTADO ALERTA CALIDAD
     Route: 048
     Dates: start: 20190527, end: 20190621

REACTIONS (2)
  - Hypertrichosis [Unknown]
  - Product formulation issue [Recovered/Resolved]

NARRATIVE: CASE EVENT DATE: 20190328
